FAERS Safety Report 9665834 (Version 1)
Quarter: 2013Q4

REPORT INFORMATION
  Report Type: Spontaneous
  Country: JP (occurrence: JP)
  Receive Date: 20131104
  Receipt Date: 20131104
  Transmission Date: 20140711
  Serious: Yes (Death)
  Sender: FDA-Public Use
  Company Number: JP-ASTELLAS-2013US011301

PATIENT
  Age: 90 Year
  Sex: Female

DRUGS (2)
  1. AMBISOME [Suspect]
     Indication: BLOOD BETA-D-GLUCAN INCREASED
     Dosage: UNK
     Route: 042
     Dates: start: 201310
  2. FUNGUARD [Concomitant]
     Indication: PRODUCT USED FOR UNKNOWN INDICATION
     Dosage: UNK
     Route: 065

REACTIONS (1)
  - Death [Fatal]
